FAERS Safety Report 14655661 (Version 2)
Quarter: 2018Q2

REPORT INFORMATION
  Report Type: Spontaneous
  Country: US (occurrence: US)
  Receive Date: 20180319
  Receipt Date: 20180422
  Transmission Date: 20180711
  Serious: Yes (Hospitalization, Other)
  Sender: FDA-Public Use
  Company Number: US-TEVA-2018-US-869106

PATIENT
  Age: 37 Year
  Sex: Male

DRUGS (1)
  1. ZOLPIDEM [Suspect]
     Active Substance: ZOLPIDEM\ZOLPIDEM TARTRATE
     Indication: INSOMNIA
     Dates: start: 20180110

REACTIONS (14)
  - Amnestic disorder [Unknown]
  - Suicide attempt [Unknown]
  - Frostbite [Unknown]
  - Chest pain [Unknown]
  - Pain [Not Recovered/Not Resolved]
  - Hypoaesthesia [Unknown]
  - Memory impairment [Unknown]
  - Haemorrhage [Unknown]
  - Disturbance in attention [Unknown]
  - Nerve injury [Unknown]
  - Acute stress disorder [Unknown]
  - Drug dependence [Unknown]
  - Overdose [Unknown]
  - Somnambulism [Unknown]

NARRATIVE: CASE EVENT DATE: 20180111
